FAERS Safety Report 6720199-1 (Version None)
Quarter: 2010Q2

REPORT INFORMATION
  Report Type: 
  Country: None (occurrence: None)
  Receive Date: 20100511
  Receipt Date: 20100507
  Transmission Date: 20101027
  Serious: Yes (Death)
  Sender: FDA-Public Use
  Company Number: FR-EISAI INC.-E2020-06572-SPO-FR

PATIENT
  Sex: Male

DRUGS (9)
  1. ARICEPT [Suspect]
     Route: 048
     Dates: end: 20100312
  2. PIRACETAM MYLAN [Suspect]
     Route: 048
     Dates: end: 20100319
  3. EXELON [Suspect]
     Route: 048
     Dates: start: 20100312, end: 20100319
  4. EXACYL [Suspect]
     Indication: EPISTAXIS
     Route: 048
     Dates: start: 20100312, end: 20100319
  5. PREVISCAN [Suspect]
     Indication: ATRIAL FIBRILLATION
     Dosage: 15 MG ALTERNATION WITH 10 MG
     Route: 048
     Dates: end: 20100319
  6. GARDENAL [Suspect]
     Indication: EPILEPSY
     Route: 048
     Dates: end: 20100329
  7. DIGOXIN [Suspect]
     Indication: ATRIAL FIBRILLATION
     Route: 048
  8. MODOPAR [Suspect]
     Indication: PARKINSON'S DISEASE
     Route: 048
     Dates: end: 20100319
  9. ADANCOR [Suspect]
     Indication: DRUG USE FOR UNKNOWN INDICATION
     Route: 048
     Dates: end: 20100319

REACTIONS (1)
  - THROMBOCYTOPENIA [None]
